FAERS Safety Report 17419206 (Version 1)
Quarter: 2020Q1

REPORT INFORMATION
  Report Type: Report from Study
  Country: US (occurrence: US)
  Receive Date: 20200214
  Receipt Date: 20200214
  Transmission Date: 20200409
  Serious: Yes (Hospitalization)
  Sender: FDA-Public Use
  Company Number: US-EISAI MEDICAL RESEARCH-EC-2019-067772

PATIENT
  Age: 62 Year
  Sex: Male
  Weight: 82.5 kg

DRUGS (14)
  1. LENVIMA [Suspect]
     Active Substance: LENVATINIB
     Indication: HEPATOCELLULAR CARCINOMA
     Route: 048
     Dates: start: 20191216
  2. TRAMADOL. [Concomitant]
     Active Substance: TRAMADOL
  3. HUMALOG [Concomitant]
     Active Substance: INSULIN LISPRO
  4. BRILINTA [Concomitant]
     Active Substance: TICAGRELOR
  5. TOUJEO [Concomitant]
     Active Substance: INSULIN GLARGINE
  6. CARVEDILOL. [Concomitant]
     Active Substance: CARVEDILOL
  7. METFORMIN [Concomitant]
     Active Substance: METFORMIN HYDROCHLORIDE
  8. LACTULOSE. [Concomitant]
     Active Substance: LACTULOSE
  9. VIIBRYD [Concomitant]
     Active Substance: VILAZODONE HYDROCHLORIDE
  10. ATORVASTATIN CALCIUM. [Concomitant]
     Active Substance: ATORVASTATIN CALCIUM
  11. LISINOPRIL. [Concomitant]
     Active Substance: LISINOPRIL
  12. UREACIN [Concomitant]
  13. GABAPENTIN. [Concomitant]
     Active Substance: GABAPENTIN
  14. SYNTHROID [Concomitant]
     Active Substance: LEVOTHYROXINE SODIUM

REACTIONS (6)
  - Renal failure [Unknown]
  - Sepsis [Unknown]
  - Pancreatitis [Unknown]
  - Chest pain [Recovered/Resolved]
  - Carbon monoxide poisoning [Unknown]
  - Confusional state [Unknown]

NARRATIVE: CASE EVENT DATE: 2020
